FAERS Safety Report 18692152 (Version 1)
Quarter: 2021Q1

REPORT INFORMATION
  Report Type: Spontaneous
  Country: US (occurrence: US)
  Receive Date: 20210102
  Receipt Date: 20210102
  Transmission Date: 20210419
  Serious: Yes (Death, Hospitalization, Other)
  Sender: FDA-Public Use
  Company Number: US-AMGEN-USASP2020211938

PATIENT
  Age: 48 Year
  Sex: Male
  Weight: 61.5 kg

DRUGS (3)
  1. PEMBROLIZUMAB. [Concomitant]
     Active Substance: PEMBROLIZUMAB
     Indication: DIFFUSE LARGE B-CELL LYMPHOMA
     Dosage: UNK
  2. BLINATUMOMAB [Suspect]
     Active Substance: BLINATUMOMAB
     Indication: DIFFUSE LARGE B-CELL LYMPHOMA
     Dosage: UNK
     Route: 065
  3. FILGRASTIM [Suspect]
     Active Substance: FILGRASTIM
     Indication: PROPHYLAXIS
     Dosage: UNK
     Route: 065

REACTIONS (13)
  - Pulmonary mass [Unknown]
  - Hepatosplenomegaly [Recovering/Resolving]
  - Ascites [Unknown]
  - Lymphadenopathy [Recovering/Resolving]
  - Fungaemia [Unknown]
  - Drug ineffective for unapproved indication [Unknown]
  - Candida infection [Unknown]
  - Pleural effusion [Unknown]
  - Pneumonia [Unknown]
  - Disseminated cryptococcosis [Unknown]
  - Death [Fatal]
  - Cachexia [Unknown]
  - Gallbladder enlargement [Unknown]
